FAERS Safety Report 23346435 (Version 1)
Quarter: 2023Q4

REPORT INFORMATION
  Report Type: Spontaneous
  Country: US (occurrence: None)
  Receive Date: 20231227
  Receipt Date: 20231227
  Transmission Date: 20240110
  Serious: Yes (Hospitalization)
  Sender: FDA-Public Use
  Company Number: None

PATIENT
  Age: 62 Year
  Sex: Male
  Weight: 51.6 kg

DRUGS (10)
  1. TECARTUS [Suspect]
     Active Substance: BREXUCABTAGENE AUTOLEUCEL
     Indication: Diffuse large B-cell lymphoma
     Dosage: OTHER FREQUENCY : ONCE;?
     Route: 041
     Dates: start: 20230905
  2. ACTEMRA [Concomitant]
     Active Substance: TOCILIZUMAB
     Dates: start: 20230905, end: 20230911
  3. anakinra (Kineret) [Concomitant]
     Dates: start: 20230909, end: 20230920
  4. dexAMETHasone (Decadron) injection [Concomitant]
     Dates: start: 20230909, end: 20230920
  5. vasopressin (Vasostrict) [Concomitant]
     Dates: start: 20230912, end: 20231212
  6. NOREPINEPHRINE [Concomitant]
     Active Substance: NOREPINEPHRINE
     Dates: start: 20230911, end: 20230912
  7. MEROPENEM [Concomitant]
     Active Substance: MEROPENEM
     Dates: start: 20230911, end: 20230914
  8. VANCOMYCIN [Concomitant]
     Active Substance: VANCOMYCIN
     Dates: start: 20230911, end: 20230913
  9. ganciclovir (Cytovene) [Concomitant]
     Dates: start: 20230915, end: 20230923
  10. valGANciclovir (Valcyte) [Concomitant]
     Dates: start: 20230924, end: 20231004

REACTIONS (7)
  - Cytokine release syndrome [None]
  - Hypoxia [None]
  - Pulmonary embolism [None]
  - Ejection fraction decreased [None]
  - Cytomegalovirus infection [None]
  - Immune effector cell-associated neurotoxicity syndrome [None]
  - Deep vein thrombosis [None]

NARRATIVE: CASE EVENT DATE: 20230901
